FAERS Safety Report 5604121-7 (Version None)
Quarter: 2008Q1

REPORT INFORMATION
  Report Type: 
  Country: None (occurrence: None)
  Receive Date: 20080128
  Receipt Date: 20080118
  Transmission Date: 20080703
  Serious: Yes (Other)
  Sender: FDA-Public Use
  Company Number: PHMT2008CA00468

PATIENT

DRUGS (1)
  1. EXJADE [Suspect]

REACTIONS (1)
  - PORTAL HYPERTENSION [None]
